FAERS Safety Report 11227868 (Version 3)
Quarter: 2015Q3

REPORT INFORMATION
  Report Type: Spontaneous
  Country: JP (occurrence: JP)
  Receive Date: 20150630
  Receipt Date: 20150821
  Transmission Date: 20151125
  Serious: No
  Sender: FDA-Public Use
  Company Number: JP-GLAXOSMITHKLINE-JP2015JPN088176

PATIENT
  Age: 78 Year
  Sex: Female

DRUGS (5)
  1. ZOVIRAX [Suspect]
     Active Substance: ACYCLOVIR
     Dosage: UNK UNK, BID
     Route: 031
     Dates: start: 20150622
  2. ZOVIRAX [Suspect]
     Active Substance: ACYCLOVIR
     Dosage: UNK UNK, QD
     Route: 031
     Dates: start: 20150706
  3. FML [Concomitant]
     Active Substance: FLUOROMETHOLONE
  4. ZOVIRAX [Suspect]
     Active Substance: ACYCLOVIR
     Indication: OPHTHALMIC HERPES SIMPLEX
     Dosage: UNK, QID
     Route: 031
     Dates: start: 20150601
  5. CRAVIT OPHTHALMIC SOLUTION [Concomitant]

REACTIONS (2)
  - Eye pain [Recovered/Resolved]
  - Skin erosion [Recovered/Resolved]

NARRATIVE: CASE EVENT DATE: 20150601
